FAERS Safety Report 6842496-1 (Version None)
Quarter: 2010Q3

REPORT INFORMATION
  Report Type: 
  Country: None (occurrence: None)
  Receive Date: 20100714
  Receipt Date: 20071022
  Transmission Date: 20110219
  Serious: No
  Sender: FDA-Public Use
  Company Number: US-PFIZER INC-2007063385

PATIENT
  Sex: Female
  Weight: 53.1 kg

DRUGS (9)
  1. CHANTIX [Suspect]
     Indication: EX-TOBACCO USER
     Route: 048
     Dates: start: 20070701, end: 20070801
  2. XANAX [Concomitant]
  3. KLONOPIN [Concomitant]
  4. METHADONE HCL [Concomitant]
  5. LORCET-HD [Concomitant]
  6. GABAPENTIN [Concomitant]
  7. ROZEREM [Concomitant]
  8. PHENERGAN ^AVENTIS PHARMA^ [Concomitant]
  9. ANALGESICS [Concomitant]
     Indication: PAIN

REACTIONS (6)
  - BLOOD ALKALINE PHOSPHATASE ABNORMAL [None]
  - CHILLS [None]
  - HYPERHIDROSIS [None]
  - LIVER FUNCTION TEST ABNORMAL [None]
  - NASOPHARYNGITIS [None]
  - NAUSEA [None]
